FAERS Safety Report 23807789 (Version 4)
Quarter: 2024Q4

REPORT INFORMATION
  Report Type: Spontaneous
  Country: CA (occurrence: CA)
  Receive Date: 20240502
  Receipt Date: 20241122
  Transmission Date: 20250115
  Serious: Yes (Hospitalization, Other)
  Sender: CSL BEHRING
  Company Number: CA-BEH-2024171419

PATIENT
  Age: 18 Year
  Sex: Female
  Weight: 103 kg

DRUGS (6)
  1. ALBUREX [Suspect]
     Active Substance: ALBUMIN HUMAN
     Indication: Plasmapheresis
     Dosage: UNK
     Route: 042
     Dates: start: 20240417, end: 20240417
  2. CALCIUM CHLORIDE [Concomitant]
     Active Substance: CALCIUM CHLORIDE
     Dosage: 156 ML
     Route: 042
     Dates: start: 20240417, end: 20240417
  3. CALCIUM CHLORIDE [Concomitant]
     Active Substance: CALCIUM CHLORIDE
     Dosage: 1.24, 1 TIME
  4. ANTICOAGULANT CITRATE DEXTROSE SOLUTION (ACD) NOS [Concomitant]
     Active Substance: CITRIC ACID MONOHYDRATE\DEXTROSE\SODIUM CITRATE
     Dosage: 136 ML
     Route: 042
     Dates: start: 20240417, end: 20240417
  5. ANTICOAGULANT CITRATE DEXTROSE SOLUTION (ACD) NOS [Concomitant]
     Active Substance: CITRIC ACID MONOHYDRATE\DEXTROSE\SODIUM CITRATE
     Dosage: 136, 1 TIME
  6. SODIUM CITRATE [Concomitant]
     Active Substance: SODIUM CITRATE
     Dosage: 136 ML
     Route: 042

REACTIONS (13)
  - Anaphylactic transfusion reaction [Recovered/Resolved]
  - Hypotension [Recovered/Resolved]
  - Chills [Recovered/Resolved]
  - Dyspnoea [Recovered/Resolved]
  - Pallor [Recovered/Resolved]
  - Dizziness [Recovered/Resolved]
  - Syncope [Recovered/Resolved]
  - Chest pain [Recovered/Resolved]
  - Chest discomfort [Recovered/Resolved]
  - Nausea [Recovered/Resolved]
  - Feeling hot [Recovered/Resolved]
  - Neck pain [Recovered/Resolved]
  - Hypoaesthesia [Recovered/Resolved]

NARRATIVE: CASE EVENT DATE: 20240417
